FAERS Safety Report 7814243-8 (Version None)
Quarter: 2011Q4

REPORT INFORMATION
  Report Type: 
  Country: None (occurrence: None)
  Receive Date: 20111014
  Receipt Date: 20111006
  Transmission Date: 20120403
  Serious: Yes (Hospitalization)
  Sender: FDA-Public Use
  Company Number: CA-JNJFOC-20110908253

PATIENT
  Age: 16 Year
  Sex: Male

DRUGS (3)
  1. LISTERINE ANTISEPTIC MOUTHWASH ORIGINAL [Suspect]
     Indication: INTENTIONAL DRUG MISUSE
     Dosage: 1 LITER 2-3 TIMES WEEKLY
     Route: 048
     Dates: start: 20070101
  2. UNKNOWN MEDICATION [Concomitant]
     Indication: ANXIETY
     Route: 065
  3. UNKNOWN MEDICATION [Concomitant]
     Indication: SLEEP DISORDER
     Route: 065

REACTIONS (5)
  - DRUG DEPENDENCE [None]
  - INCORRECT ROUTE OF DRUG ADMINISTRATION [None]
  - DRUG ABUSE [None]
  - ANOSMIA [None]
  - VOMITING [None]
